FAERS Safety Report 6220182-9 (Version None)
Quarter: 2009Q2

REPORT INFORMATION
  Report Type: 
  Country: None (occurrence: None)
  Receive Date: 20090605
  Receipt Date: 20090525
  Transmission Date: 20091009
  Serious: Yes (Hospitalization)
  Sender: FDA-Public Use
  Company Number: 2009-197390-NL

PATIENT
  Age: 58 Year
  Sex: Female

DRUGS (3)
  1. MIRTAZAPINE [Suspect]
     Indication: DEPRESSION
     Dosage: 15 MG
     Dates: start: 20090101, end: 20090411
  2. MIRTAZAPINE [Suspect]
     Indication: SLEEP DISORDER
     Dosage: 15 MG
     Dates: start: 20090101, end: 20090411
  3. TELITHROMYCIN [Suspect]
     Indication: PNEUMONIA
     Dates: start: 20090323, end: 20090401

REACTIONS (7)
  - ASTHENIA [None]
  - FATIGUE [None]
  - HEPATIC STEATOSIS [None]
  - LABORATORY TEST ABNORMAL [None]
  - PNEUMONIA [None]
  - PYREXIA [None]
  - VIRAL INFECTION [None]
